FAERS Safety Report 15285270 (Version 1)
Quarter: 2018Q3

REPORT INFORMATION
  Report Type: Report from Study
  Country: BR (occurrence: BR)
  Receive Date: 20180816
  Receipt Date: 20180816
  Transmission Date: 20181010
  Serious: Yes (Other)
  Sender: FDA-Public Use
  Company Number: BR-JNJFOC-20180812826

PATIENT
  Age: 53 Year
  Sex: Female
  Weight: 82 kg

DRUGS (3)
  1. ROSUVASTATIN. [Concomitant]
     Active Substance: ROSUVASTATIN
     Route: 065
  2. SIMPONI [Suspect]
     Active Substance: GOLIMUMAB
     Indication: RHEUMATOID ARTHRITIS
     Route: 058
     Dates: start: 20140224
  3. LOSARTAN. [Concomitant]
     Active Substance: LOSARTAN
     Route: 065

REACTIONS (3)
  - Bronchitis [Unknown]
  - Intervertebral disc protrusion [Unknown]
  - Pneumonia [Unknown]

NARRATIVE: CASE EVENT DATE: 201807
